FAERS Safety Report 6669219-3 (Version None)
Quarter: 2010Q2

REPORT INFORMATION
  Report Type: 
  Country: None (occurrence: None)
  Receive Date: 20100406
  Receipt Date: 20100331
  Transmission Date: 20101027
  Serious: Yes (Other)
  Sender: FDA-Public Use
  Company Number: JP-SANOFI-AVENTIS-2010SA019067

PATIENT

DRUGS (2)
  1. LASIX [Suspect]
     Indication: DRUG USE FOR UNKNOWN INDICATION
  2. NU-LOTAN [Concomitant]

REACTIONS (1)
  - PANCYTOPENIA [None]
